FAERS Safety Report 16123072 (Version 1)
Quarter: 2019Q1

REPORT INFORMATION
  Report Type: Report from Study
  Country: None (occurrence: US)
  Receive Date: 20190327
  Receipt Date: 20190327
  Transmission Date: 20190418
  Serious: Yes (Other)
  Sender: FDA-Public Use
  Company Number: US-ABBVIE-19S-163-2718667-00

PATIENT
  Age: 27 Year
  Sex: Female

DRUGS (1)
  1. CREON [Suspect]
     Active Substance: PANCRELIPASE AMYLASE\PANCRELIPASE LIPASE\PANCRELIPASE PROTEASE
     Indication: PRODUCT USED FOR UNKNOWN INDICATION
     Route: 048

REACTIONS (23)
  - Hypophagia [Unknown]
  - Diarrhoea [Unknown]
  - Haematemesis [Unknown]
  - Gastritis [Unknown]
  - Deep vein thrombosis [Unknown]
  - Nicotine dependence [Unknown]
  - Arthralgia [Unknown]
  - Pain [Unknown]
  - Meniscus removal [Unknown]
  - Pulmonary embolism [Unknown]
  - Essential hypertension [Unknown]
  - Chronic left ventricular failure [Unknown]
  - Gastrooesophageal reflux disease [Unknown]
  - Weight decreased [Unknown]
  - Abdominal pain upper [Unknown]
  - Abdominal pain upper [Unknown]
  - Chronic obstructive pulmonary disease [Unknown]
  - Pneumonia [Unknown]
  - Nausea [Unknown]
  - Female sterilisation [Unknown]
  - Type 2 diabetes mellitus [Unknown]
  - Abdominal pain upper [Unknown]
  - Vomiting [Unknown]

NARRATIVE: CASE EVENT DATE: 19990811
